FAERS Safety Report 12415974 (Version 5)
Quarter: 2016Q3

REPORT INFORMATION
  Report Type: Spontaneous
  Country: DE (occurrence: DE)
  Receive Date: 20160530
  Receipt Date: 20160825
  Transmission Date: 20161109
  Serious: Yes (Death, Hospitalization, Disabling)
  Sender: FDA-Public Use
  Company Number: DE-PFIZER INC-2016267287

PATIENT
  Age: 82 Year
  Sex: Female
  Weight: 45 kg

DRUGS (4)
  1. ASPIRIN. [Concomitant]
     Active Substance: ASPIRIN
     Indication: PERIPHERAL ARTERIAL OCCLUSIVE DISEASE
     Dosage: 100 MG, 1X/DAY
  2. MIRTAZAPIN [Concomitant]
     Active Substance: MIRTAZAPINE
     Indication: DEPRESSION
     Dosage: 15 MG, 1X/DAY
     Route: 048
  3. SIMVASTATIN. [Concomitant]
     Active Substance: SIMVASTATIN
     Indication: HYPERLIPIDAEMIA
     Dosage: 20 MG, 1X/DAY
     Route: 048
  4. RAMIPRIL. [Suspect]
     Active Substance: RAMIPRIL
     Indication: HYPERTENSION
     Dosage: 10 MG, DAILY
     Route: 048
     Dates: end: 2016

REACTIONS (18)
  - Brain injury [Unknown]
  - Death [Fatal]
  - Condition aggravated [Unknown]
  - Muscle spasticity [Unknown]
  - Cerebral microangiopathy [Unknown]
  - Dehydration [Unknown]
  - Brain injury [Not Recovered/Not Resolved]
  - Hypokalaemia [Unknown]
  - Monoparesis [Unknown]
  - Aortic arteriosclerosis [Unknown]
  - Myelopathy [Unknown]
  - Pain [Unknown]
  - Hyponatraemia [Recovering/Resolving]
  - Dementia [Unknown]
  - Hypernatraemia [Recovered/Resolved]
  - Rebound effect [Unknown]
  - Escherichia urinary tract infection [Unknown]
  - Anaemia [Unknown]

NARRATIVE: CASE EVENT DATE: 2016
